FAERS Safety Report 7851656-2 (Version None)
Quarter: 2011Q4

REPORT INFORMATION
  Report Type: 
  Country: None (occurrence: None)
  Receive Date: 20111026
  Receipt Date: 20111015
  Transmission Date: 20120403
  Serious: Yes (Hospitalization, Other)
  Sender: FDA-Public Use
  Company Number: PHHO2011JP17013

PATIENT
  Sex: Female
  Weight: 40 kg

DRUGS (2)
  1. LETROZOLE [Suspect]
     Dosage: 2.5 MG, QD
     Route: 048
     Dates: start: 20111006
  2. LETROZOLE [Suspect]
     Indication: BREAST CANCER
     Dosage: 2.5 MG, QD
     Route: 048
     Dates: start: 20080112, end: 20111003

REACTIONS (3)
  - NEOPLASM MALIGNANT [None]
  - HAEMORRHAGIC ANAEMIA [None]
  - GASTRIC CANCER [None]
